FAERS Safety Report 9119644 (Version 1)
Quarter: 2013Q1

REPORT INFORMATION
  Report Type: Spontaneous
  Country: US (occurrence: US)
  Receive Date: 20130226
  Receipt Date: 20130226
  Transmission Date: 20140127
  Serious: Yes (Other)
  Sender: FDA-Public Use
  Company Number: US-BAYER-2013-021685

PATIENT
  Age: 79 Year
  Sex: Male
  Weight: 61.22 kg

DRUGS (3)
  1. BAYER ASPIRIN REGIMEN ADULT LOW STRENGTH [Suspect]
     Indication: ISCHAEMIC HEART DISEASE PROPHYLAXIS
     Dosage: 2 DF, QD
     Route: 048
     Dates: start: 2012, end: 201302
  2. IRON [Concomitant]
  3. VITAMIN D [Concomitant]

REACTIONS (1)
  - Macular degeneration [None]
